FAERS Safety Report 13518705 (Version 5)
Quarter: 2017Q4

REPORT INFORMATION
  Report Type: Report from Study
  Country: AU (occurrence: AU)
  Receive Date: 20170505
  Receipt Date: 20171010
  Transmission Date: 20180320
  Serious: Yes (Hospitalization)
  Sender: FDA-Public Use
  Company Number: AU-EMD SERONO-E2B_80061337

PATIENT
  Age: 34 Year
  Sex: Female
  Weight: 53 kg

DRUGS (33)
  1. DOXORUBICIN [Suspect]
     Active Substance: DOXORUBICIN
     Indication: OVARIAN CANCER
     Dosage: MONTHLY
     Route: 042
     Dates: start: 20170221, end: 20170221
  2. ATIVAN [Concomitant]
     Active Substance: LORAZEPAM
     Indication: ANXIETY
     Dosage: 1MG TO 2MG, THREE TIMES A DAY AS NEEDED
     Route: 048
     Dates: start: 2016
  3. APREPITANT. [Concomitant]
     Active Substance: APREPITANT
     Indication: PROPHYLAXIS OF NAUSEA AND VOMITING
     Dosage: 165 MG, ONCE
     Route: 048
     Dates: start: 20170221, end: 20170221
  4. MORPHINE/MORPHINE HYDROCHLORIDE [Concomitant]
     Indication: PAIN
     Dosage: 10 MG, EVERY 2 HOUR AS NEEDED
     Route: 058
     Dates: start: 2016
  5. ONDANSETRON /00955302/ [Concomitant]
     Indication: NAUSEA
     Dosage: 8 MG, EVERY 6 HOURS AS NEEDED
     Route: 048
     Dates: start: 20170217
  6. DEXAMETHASONE. [Concomitant]
     Active Substance: DEXAMETHASONE
     Indication: HEADACHE
     Dosage: 2-8MG ONCE DAILY TO TWICE DAILY, INTRAVENOUS/ORAL
     Route: 042
     Dates: start: 20170210, end: 20170212
  7. MAXOLON [Concomitant]
     Active Substance: METOCLOPRAMIDE HYDROCHLORIDE
     Indication: NAUSEA
     Dosage: 10 MG (ORAL AND SUBCUTANEOUS), 8 HOURLY AS NEEDED
     Dates: start: 2016
  8. FENTANYL. [Concomitant]
     Active Substance: FENTANYL
     Dosage: 600 UG, EVERY 2 HOURS AS NEEDED
  9. PROCTOSEDYL [Concomitant]
     Active Substance: DIBUCAINE HYDROCHLORIDE\HYDROCORTISONE
     Indication: HAEMORRHOIDS
     Dosage: UNK UNK, 3X/DAY AS NEEDED
     Route: 061
     Dates: start: 20160211
  10. SOMAC [Concomitant]
     Active Substance: PANTOPRAZOLE SODIUM
     Indication: GASTROOESOPHAGEAL REFLUX DISEASE
     Dosage: 40 MG, 2X/DAY
     Route: 048
     Dates: start: 2016
  11. FENTANYL. [Concomitant]
     Active Substance: FENTANYL
     Dosage: 100 UG, 3/7 CYCLIC
     Route: 061
  12. PANADOL [Concomitant]
     Active Substance: ACETAMINOPHEN
     Indication: PAIN
  13. LORATADINE. [Concomitant]
     Active Substance: LORATADINE
     Indication: ANTIALLERGIC THERAPY
     Dosage: 10 MG, ONCE
     Route: 048
     Dates: start: 20170221, end: 20170221
  14. DEXAMETHASONE. [Concomitant]
     Active Substance: DEXAMETHASONE
     Dosage: 2-8MG ONCE DAILY TO TWICE DAILY, INTRAVENOUS/ORAL
     Route: 042
     Dates: start: 20170213, end: 20170213
  15. DEXAMETHASONE. [Concomitant]
     Active Substance: DEXAMETHASONE
     Dosage: 2-8MG ONCE DAILY TO TWICE DAILY, INTRAVENOUS/ORAL
     Route: 048
     Dates: start: 20170213, end: 20170213
  16. FENTANYL. [Concomitant]
     Active Substance: FENTANYL
     Dosage: 400 UG, EVERY 1 HOUR AS NEEDED
     Route: 048
     Dates: start: 2016
  17. DEXAMETHASONE. [Concomitant]
     Active Substance: DEXAMETHASONE
     Indication: PYREXIA
     Dosage: 2-8MG ONCE DAILY TO TWICE DAILY, INTRAVENOUS/ORAL
     Route: 048
     Dates: start: 20170210, end: 20170212
  18. AVELUMAB [Suspect]
     Active Substance: AVELUMAB
     Indication: OVARIAN CANCER
     Dosage: CYCLIC (FORTNIGHTLY)
     Route: 042
     Dates: start: 20170221, end: 20170221
  19. ENDONE [Concomitant]
     Active Substance: OXYCODONE HYDROCHLORIDE
     Indication: PAIN
     Dosage: 5 MG, AS NEEDED
     Route: 048
     Dates: start: 2016
  20. LYRICA [Concomitant]
     Active Substance: PREGABALIN
     Indication: PAIN
     Dosage: 25 MG, 2X/DAY
     Route: 048
     Dates: start: 2016
  21. OXYCONTIN [Concomitant]
     Active Substance: OXYCODONE HYDROCHLORIDE
     Indication: PAIN
     Dosage: 20 MG, 2X/DAY
     Route: 048
     Dates: start: 2016
  22. MOVICOL [Concomitant]
     Active Substance: POLYETHYLENE GLYCOL 3350\POTASSIUM CHLORIDE\SODIUM BICARBONATE\SODIUM CHLORIDE
     Indication: CONSTIPATION
     Dosage: 2 SACHETS, TWICE A DAY AS NEEDED
     Route: 048
     Dates: start: 2016
  23. APREPITANT. [Concomitant]
     Active Substance: APREPITANT
     Indication: VOMITING
  24. PALONOSETRON HCL [Concomitant]
     Active Substance: PALONOSETRON HYDROCHLORIDE
     Indication: PROPHYLAXIS OF NAUSEA AND VOMITING
     Dosage: 250 MG, ONCE
     Route: 042
     Dates: start: 20170221, end: 20170221
  25. PHENERGAN [Concomitant]
     Active Substance: PROMETHAZINE HYDROCHLORIDE
     Indication: HYPERSENSITIVITY
  26. GASTROSTOP [Concomitant]
     Indication: DIARRHOEA
     Dosage: 2 MG, AS NEEDED
     Route: 048
     Dates: start: 20170221
  27. DULCOLAX (BISACODYL) [Concomitant]
     Active Substance: BISACODYL
     Indication: CONSTIPATION
     Dosage: 10 DROPS TWICE A DAY, AS NEEDED
     Route: 048
     Dates: start: 2016
  28. PANADOL [Concomitant]
     Active Substance: ACETAMINOPHEN
     Indication: HEADACHE
     Dosage: 1 G, EVERY 6 HOURS AS NEEDED
     Route: 048
     Dates: start: 2016
  29. FENTANYL. [Concomitant]
     Active Substance: FENTANYL
     Indication: PAIN
     Dosage: 62 UG, 3/7
     Route: 061
     Dates: start: 2016
  30. ENDONE [Concomitant]
     Active Substance: OXYCODONE HYDROCHLORIDE
     Dosage: 10-20MG, EVERY 2 HOURS AS NEEDED
     Dates: start: 201702
  31. PANADOL [Concomitant]
     Active Substance: ACETAMINOPHEN
     Indication: PYREXIA
  32. ONDANSETRON /00955302/ [Concomitant]
     Indication: VOMITING
  33. PHENERGAN [Concomitant]
     Active Substance: PROMETHAZINE HYDROCHLORIDE
     Indication: ANTIALLERGIC THERAPY
     Dosage: 6.25 MG, ONCE
     Route: 042
     Dates: start: 20170221, end: 20170221

REACTIONS (3)
  - Pyrexia [Recovered/Resolved with Sequelae]
  - Pain [Recovered/Resolved with Sequelae]
  - Tachycardia [Recovered/Resolved with Sequelae]

NARRATIVE: CASE EVENT DATE: 20170222
